APPROVED DRUG PRODUCT: CEFADROXIL
Active Ingredient: CEFADROXIL/CEFADROXIL HEMIHYDRATE
Strength: EQ 500MG BASE
Dosage Form/Route: CAPSULE;ORAL
Application: A205072 | Product #001
Applicant: CSPC OUYI PHARMACEUTICAL CO LTD
Approved: Jul 28, 2017 | RLD: No | RS: No | Type: DISCN